FAERS Safety Report 9669070 (Version 1)
Quarter: 2013Q4

REPORT INFORMATION
  Report Type: Spontaneous
  Country: US (occurrence: None)
  Receive Date: 20131104
  Receipt Date: 20131104
  Transmission Date: 20140711
  Serious: Yes (Life-Threatening, Disabling, Other)
  Sender: FDA-Public Use
  Company Number: None

PATIENT
  Age: 82 Year
  Sex: Female
  Weight: 56.7 kg

DRUGS (1)
  1. ALBUTEROL SULFATE [Suspect]
     Dosage: 1 VIAL IN NEBULIZER EVERY, THREE TIMES DAILY, INHALATION
     Route: 055
     Dates: start: 20130930, end: 20131028

REACTIONS (2)
  - Cough [None]
  - Traumatic lung injury [None]
